FAERS Safety Report 6371439-2 (Version None)
Quarter: 2009Q3

REPORT INFORMATION
  Report Type: 
  Country: None (occurrence: None)
  Receive Date: 20090923
  Receipt Date: 20081210
  Transmission Date: 20100115
  Serious: No
  Sender: FDA-Public Use
  Company Number: US-ASTRAZENECA-2007UW10009

PATIENT
  Age: 5111 Day
  Sex: Female
  Weight: 118.8 kg

DRUGS (6)
  1. SEROQUEL [Suspect]
     Indication: BIPOLAR DISORDER
     Dosage: 200 MG, 300 MG
     Route: 048
     Dates: start: 20050509, end: 20060601
  2. ABILIFY [Concomitant]
     Dosage: 10 MG; 26-MAY-2006, 28-JUN-2006, 30-JUL-2006
  3. RISPERDAL [Concomitant]
  4. DEPAKOTE [Concomitant]
     Dosage: 500 MG
  5. ADDERALL XR 30 [Concomitant]
     Dosage: 30 MG, 5 MG
     Dates: start: 20051209, end: 20060730
  6. LEXAPRO [Concomitant]
     Dosage: 10 MG
     Dates: start: 20050509, end: 20060730

REACTIONS (3)
  - JOINT INJURY [None]
  - TYPE 2 DIABETES MELLITUS [None]
  - WHIPLASH INJURY [None]
